FAERS Safety Report 6189897-5 (Version None)
Quarter: 2009Q2

REPORT INFORMATION
  Report Type: 
  Country: None (occurrence: None)
  Receive Date: 20090514
  Receipt Date: 20070508
  Transmission Date: 20091009
  Serious: Yes (Other)
  Sender: FDA-Public Use
  Company Number: US-ASTRAZENECA-2006UW21040

PATIENT
  Age: 13410 Day
  Sex: Male
  Weight: 111.6 kg

DRUGS (20)
  1. SEROQUEL [Suspect]
     Indication: MENTAL DISORDER
     Dosage: 200-400MG
     Route: 048
     Dates: start: 20020726
  2. ABILIFY [Concomitant]
     Route: 065
     Dates: start: 20050101
  3. HALDOL [Concomitant]
     Route: 065
     Dates: start: 19890101
  4. NAVANE [Concomitant]
     Route: 065
     Dates: start: 19910101
  5. RISPERDAL [Concomitant]
     Route: 065
     Dates: start: 20010101
  6. ZYPREXA [Concomitant]
     Route: 065
     Dates: start: 19990101, end: 20050101
  7. DOXEPIN HCL [Concomitant]
     Dosage: 50MG-100MG
     Route: 048
  8. ESCITALOPRAM [Concomitant]
     Dosage: 10MG-20MG
     Route: 048
  9. DIPHENHYDRAMINE HCL [Concomitant]
     Dosage: 50MG-100MG
     Route: 048
  10. BUPROPION HCL [Concomitant]
     Route: 048
  11. PAROXETINE HCL [Concomitant]
     Route: 048
  12. NAPROXEN [Concomitant]
     Route: 048
  13. NEURONTIN [Concomitant]
     Dosage: 100MG-300MG
     Route: 048
     Dates: start: 20020726
  14. RANITIDINE [Concomitant]
     Route: 048
  15. PREVACID [Concomitant]
     Route: 048
  16. ROFECOXIB [Concomitant]
     Route: 048
  17. CLONIDINE [Concomitant]
     Route: 048
  18. HYDROXYZINE [Concomitant]
     Route: 048
  19. BENZTROPINE [Concomitant]
     Route: 048
  20. DIVALPROEX SODIUM [Concomitant]
     Route: 048
     Dates: start: 20031030

REACTIONS (20)
  - ABDOMINAL PAIN [None]
  - ANOREXIA [None]
  - ANXIETY [None]
  - ARTHRITIS [None]
  - BRONCHITIS [None]
  - CHEST PAIN [None]
  - DIABETES MELLITUS [None]
  - DIZZINESS [None]
  - DUODENITIS [None]
  - GASTRITIS [None]
  - HEADACHE [None]
  - HELICOBACTER INFECTION [None]
  - MUSCLE STRAIN [None]
  - MUSCULOSKELETAL DISCOMFORT [None]
  - MUSCULOSKELETAL PAIN [None]
  - REFLUX OESOPHAGITIS [None]
  - SCHIZOPHRENIA [None]
  - SUICIDAL IDEATION [None]
  - VIRAL INFECTION [None]
  - WITHDRAWAL SYNDROME [None]
